FAERS Safety Report 8721398 (Version 2)
Quarter: 2013Q3

REPORT INFORMATION
  Report Type: Spontaneous
  Country: CA (occurrence: CA)
  Receive Date: 20120813
  Receipt Date: 20130823
  Transmission Date: 20140515
  Serious: Yes (Death)
  Sender: FDA-Public Use
  Company Number: CA-B.I. PHARMACEUTICALS,INC./RIDGEFIELD-2012-CN-01705CN

PATIENT
  Sex: Female

DRUGS (2)
  1. PRADAX [Suspect]
     Indication: ATRIAL FIBRILLATION
     Dosage: 300 MG
     Dates: start: 2011
  2. CELEBREX [Concomitant]
     Indication: INFLAMMATION

REACTIONS (2)
  - Cardiac tamponade [Fatal]
  - Renal failure [Unknown]
